FAERS Safety Report 19943208 (Version 1)
Quarter: 2021Q4

REPORT INFORMATION
  Report Type: Spontaneous
  Country: US (occurrence: US)
  Receive Date: 20211008
  Receipt Date: 20211008
  Transmission Date: 20220304
  Serious: Yes (Hospitalization)
  Sender: FDA-Public Use
  Company Number: None

PATIENT
  Age: 55 Year
  Sex: Male
  Weight: 70 kg

DRUGS (4)
  1. APIXABAN [Suspect]
     Active Substance: APIXABAN
     Indication: Thrombosis prophylaxis
     Route: 048
     Dates: start: 20210916, end: 20210928
  2. DEXTROMETHORPHAN [Concomitant]
     Active Substance: DEXTROMETHORPHAN
     Dates: start: 20210919
  3. OXYCODONE [Concomitant]
     Active Substance: OXYCODONE
     Dates: start: 20210919
  4. SILDENAFIL [Concomitant]
     Active Substance: SILDENAFIL
     Dates: start: 20210901

REACTIONS (2)
  - Epistaxis [None]
  - Pharyngeal haemorrhage [None]

NARRATIVE: CASE EVENT DATE: 20210926
